FAERS Safety Report 5672339-3 (Version None)
Quarter: 2008Q1

REPORT INFORMATION
  Report Type: 
  Country: None (occurrence: None)
  Receive Date: 20080318
  Receipt Date: 20080318
  Transmission Date: 20080703
  Serious: Yes (Other)
  Sender: FDA-Public Use
  Company Number: None

PATIENT
  Sex: Female
  Weight: 53.5244 kg

DRUGS (1)
  1. NABUMETONE [Suspect]
     Indication: INFLAMMATION
     Dosage: 750MG BID PO
     Route: 048
     Dates: start: 20070518, end: 20080314

REACTIONS (3)
  - FEELING HOT [None]
  - HYPERHIDROSIS [None]
  - TEMPERATURE REGULATION DISORDER [None]
